FAERS Safety Report 9518791 (Version 1)
Quarter: 2013Q3

REPORT INFORMATION
  Report Type: Spontaneous
  Country: US (occurrence: US)
  Receive Date: 20130912
  Receipt Date: 20130912
  Transmission Date: 20140515
  Serious: Yes (Other)
  Sender: FDA-Public Use
  Company Number: US-PFIZER INC-2013262610

PATIENT
  Age: 83 Year
  Sex: Female
  Weight: 58.05 kg

DRUGS (1)
  1. LYRICA [Suspect]
     Indication: NEUROPATHY PERIPHERAL
     Dosage: 50 MG, 2X/DAY
     Dates: start: 2011

REACTIONS (2)
  - Cerebrovascular accident [Unknown]
  - Cerebral thrombosis [Unknown]
